FAERS Safety Report 9257732 (Version 3)
Quarter: 2014Q2

REPORT INFORMATION
  Report Type: Report from Study
  Country: US (occurrence: US)
  Receive Date: 20130426
  Receipt Date: 20140521
  Transmission Date: 20141212
  Serious: Yes (Hospitalization)
  Sender: FDA-Public Use
  Company Number: US-IPSEN BIOPHARMACEUTICALS, INC.-2012-8334

PATIENT
  Age: 11 Year
  Sex: Female
  Weight: 55.8 kg

DRUGS (16)
  1. INCRELEX [Suspect]
     Indication: PRIMARY INSULIN LIKE GROWTH FACTOR-1 DEFICIENCY
     Route: 058
     Dates: start: 20110520, end: 20120308
  2. INCRELEX [Suspect]
     Route: 058
     Dates: start: 20080214
  3. INCRELEX [Suspect]
     Route: 058
     Dates: start: 20080814
  4. INCRELEX [Suspect]
     Route: 058
     Dates: start: 20081113
  5. INCRELEX [Suspect]
     Route: 058
     Dates: start: 20091204
  6. INCRELEX [Suspect]
     Route: 058
     Dates: start: 20100610
  7. INCRELEX [Suspect]
     Route: 058
     Dates: start: 20100701
  8. INCRELEX [Suspect]
     Route: 058
     Dates: start: 20100916
  9. INCRELEX [Suspect]
     Route: 058
     Dates: start: 20120310, end: 20130520
  10. INCRELEX [Suspect]
     Route: 058
     Dates: start: 20130521
  11. CELEXA [Concomitant]
     Indication: DEPRESSION
     Dosage: NOT REPORTED
     Route: 065
     Dates: start: 201205, end: 201208
  12. LUPRON DEPOT [Concomitant]
     Indication: PRECOCIOUS PUBERTY
     Dosage: 30 MG, EVERY 12 WEEKS
     Route: 065
     Dates: start: 201108
  13. WELLBUTRIN [Concomitant]
     Indication: DEPRESSION
     Dosage: NOT REPORTED
     Route: 065
     Dates: start: 201208
  14. ZOLOFT [Concomitant]
     Indication: DEPRESSION
     Dosage: NOT REPORTED
     Route: 065
     Dates: start: 201208
  15. OXYBUTYNIN [Concomitant]
     Indication: MICTURITION URGENCY
     Dosage: NOT REPORTED
     Route: 065
     Dates: start: 201109
  16. FLONASE [Concomitant]
     Indication: PRODUCT USED FOR UNKNOWN INDICATION
     Dosage: NOT REPORTED

REACTIONS (4)
  - Constipation [Recovered/Resolved]
  - Encopresis [Not Recovered/Not Resolved]
  - Abdominal pain [Recovered/Resolved]
  - Drug dose omission [Unknown]
